FAERS Safety Report 4988338-0 (Version None)
Quarter: 2006Q2

REPORT INFORMATION
  Report Type: 
  Country: None (occurrence: None)
  Receive Date: 20060502
  Receipt Date: 20060424
  Transmission Date: 20061013
  Serious: Yes (Other)
  Sender: FDA-Public Use
  Company Number: ES-BOEHRINGER INGELHEIM PHARMACEUTICALS, INC.-2006-DE-02057GD

PATIENT

DRUGS (2)
  1. NEVIRAPINE [Suspect]
     Indication: HIV INFECTION
  2. ANTIRETROVIRAL AGENTS [Suspect]
     Indication: HIV INFECTION

REACTIONS (3)
  - DRUG INEFFECTIVE [None]
  - DRUG RESISTANCE [None]
  - THERAPY NON-RESPONDER [None]
